FAERS Safety Report 10236780 (Version 1)
Quarter: 2014Q2

REPORT INFORMATION
  Report Type: Spontaneous
  Country: SE (occurrence: SE)
  Receive Date: 20140613
  Receipt Date: 20140613
  Transmission Date: 20141212
  Serious: Yes (Other)
  Sender: FDA-Public Use
  Company Number: SE-GLAXOSMITHKLINE-B1003573A

PATIENT
  Age: 19 Year
  Sex: Male

DRUGS (2)
  1. LAMICTAL [Suspect]
     Indication: AFFECTIVE DISORDER
     Dosage: 100MG TWICE PER DAY
     Route: 048
     Dates: start: 201310, end: 20131221
  2. CIPRALEX [Concomitant]

REACTIONS (6)
  - Anger [Unknown]
  - Mood altered [Unknown]
  - Nausea [Not Recovered/Not Resolved]
  - Dizziness [Unknown]
  - Aggression [Unknown]
  - Anxiety [Unknown]
